FAERS Safety Report 16104405 (Version 1)
Quarter: 2019Q1

REPORT INFORMATION
  Report Type: Spontaneous
  Country: GR (occurrence: GR)
  Receive Date: 20190322
  Receipt Date: 20190322
  Transmission Date: 20190418
  Serious: Yes (Death, Other)
  Sender: FDA-Public Use
  Company Number: GR-AUROBINDO-AUR-APL-2019-014718

PATIENT

DRUGS (6)
  1. XANAX [Concomitant]
     Active Substance: ALPRAZOLAM
     Indication: ANXIETY
     Dosage: UNK
     Route: 065
  2. MIRTAZAPINE. [Suspect]
     Active Substance: MIRTAZAPINE
     Indication: DEPRESSION
     Dosage: 45 MILLIGRAM
     Route: 065
  3. BRINTELLIX [Suspect]
     Active Substance: VORTIOXETINE HYDROBROMIDE
     Dosage: 10 MILLIGRAM, DAILY
     Route: 048
  4. BRINTELLIX [Suspect]
     Active Substance: VORTIOXETINE HYDROBROMIDE
     Dosage: 5 MILLIGRAM, DAILY
     Route: 048
     Dates: start: 20190212
  5. MIRTAZAPINE. [Suspect]
     Active Substance: MIRTAZAPINE
     Dosage: 45 MILLIGRAM, ONCE A DAY
     Route: 048
     Dates: start: 201812
  6. BRINTELLIX [Suspect]
     Active Substance: VORTIOXETINE HYDROBROMIDE
     Indication: DEPRESSION
     Dosage: 15 MILLIGRAM, DAILY
     Route: 048

REACTIONS (2)
  - Suicidal ideation [Unknown]
  - Completed suicide [Fatal]

NARRATIVE: CASE EVENT DATE: 201902
